FAERS Safety Report 24143238 (Version 2)
Quarter: 2024Q3

REPORT INFORMATION
  Report Type: Spontaneous
  Country: BR (occurrence: BR)
  Receive Date: 20240726
  Receipt Date: 20240809
  Transmission Date: 20241016
  Serious: Yes (Life-Threatening, Hospitalization)
  Sender: TEVA
  Company Number: BR-TEVA-VS-3224155

PATIENT
  Age: 60 Year
  Sex: Male

DRUGS (12)
  1. CARBOPLATIN [Suspect]
     Active Substance: CARBOPLATIN
     Indication: Lung squamous cell carcinoma metastatic
     Dosage: AUC 6
     Route: 065
     Dates: start: 201901
  2. CISPLATIN [Suspect]
     Active Substance: CISPLATIN
     Indication: Lung squamous cell carcinoma metastatic
     Dosage: ON DAY?1
     Route: 042
     Dates: start: 201906
  3. CISPLATIN [Suspect]
     Active Substance: CISPLATIN
     Indication: Lung squamous cell carcinoma metastatic
     Dosage: ON DAY?1
     Route: 065
     Dates: end: 202011
  4. CISPLATIN [Suspect]
     Active Substance: CISPLATIN
     Indication: Lung squamous cell carcinoma metastatic
     Dosage: ON DAY?1 8
     Route: 042
  5. PACLITAXEL [Suspect]
     Active Substance: PACLITAXEL
     Indication: Lung squamous cell carcinoma metastatic
     Dosage: FOR FOUR CYCLES
     Route: 065
     Dates: start: 201901
  6. PACLITAXEL [Suspect]
     Active Substance: PACLITAXEL
     Indication: Lung squamous cell carcinoma metastatic
     Dosage: EVERY 3?WEEKS
     Route: 042
     Dates: start: 201906, end: 202011
  7. PEMBROLIZUMAB [Suspect]
     Active Substance: PEMBROLIZUMAB
     Indication: Lung squamous cell carcinoma metastatic
     Route: 042
     Dates: start: 201709
  8. RAMUCIRUMAB [Suspect]
     Active Substance: RAMUCIRUMAB
     Indication: Lung squamous cell carcinoma metastatic
     Dosage: EVERY 3?WEEKS
     Route: 042
     Dates: start: 201906, end: 202011
  9. VINORELBINE [Suspect]
     Active Substance: VINORELBINE TARTRATE
     Indication: Lung squamous cell carcinoma metastatic
     Dosage: ON DAY?1, 8, 15, 22
     Route: 065
     Dates: start: 201906, end: 202011
  10. VINORELBINE [Suspect]
     Active Substance: VINORELBINE TARTRATE
     Indication: Lung squamous cell carcinoma metastatic
     Dosage: ON DAY?1,8,15 AND 22 EVERY 4?WEEK 4?CYCLES
     Route: 042
  11. DOCETAXEL [Suspect]
     Active Substance: DOCETAXEL\DOCETAXEL ANHYDROUS
     Indication: Lung squamous cell carcinoma metastatic
     Route: 065
     Dates: start: 201906, end: 202011
  12. GEMCITABINE [Suspect]
     Active Substance: GEMCITABINE
     Indication: Lung squamous cell carcinoma metastatic
     Dosage: ON DAY?1 AND 8 EVERY 3?WEEKS
     Route: 065
     Dates: start: 201906, end: 202011

REACTIONS (1)
  - Drug ineffective [Unknown]
